FAERS Safety Report 10049033 (Version 2)
Quarter: 2014Q2

REPORT INFORMATION
  Report Type: Spontaneous
  Country: US (occurrence: US)
  Receive Date: 20140331
  Receipt Date: 20140404
  Transmission Date: 20141212
  Serious: No
  Sender: FDA-Public Use
  Company Number: US-MERCK-1403USA011552

PATIENT
  Sex: 0

DRUGS (1)
  1. NOXAFIL [Suspect]
     Indication: ADVERSE EVENT
     Dosage: 300 MG, DAILY THROUGH AN N-G TUBE
     Dates: start: 20140322, end: 20140324

REACTIONS (3)
  - Wrong technique in drug usage process [Unknown]
  - Incorrect route of drug administration [Unknown]
  - No adverse event [Unknown]
